FAERS Safety Report 7214689-5 (Version None)
Quarter: 2011Q1

REPORT INFORMATION
  Report Type: 
  Country: None (occurrence: None)
  Receive Date: 20110107
  Receipt Date: 20091110
  Transmission Date: 20110831
  Serious: No
  Sender: FDA-Public Use
  Company Number: A0816289A

PATIENT
  Age: 72 Year
  Sex: Female

DRUGS (8)
  1. LOVAZA [Suspect]
     Dosage: 4CAP PER DAY
     Route: 048
     Dates: start: 20090609
  2. RED YEAST RICE [Concomitant]
  3. VITAMIN D [Concomitant]
  4. VITAMIN B-12 [Concomitant]
  5. CENTRUM [Concomitant]
  6. OSTEOBIFLEX [Concomitant]
  7. ASPIRIN [Concomitant]
  8. PROBIOTIC [Concomitant]

REACTIONS (1)
  - LOW DENSITY LIPOPROTEIN INCREASED [None]
